FAERS Safety Report 10358663 (Version 2)
Quarter: 2014Q3

REPORT INFORMATION
  Report Type: Report from Study
  Country: US (occurrence: US)
  Receive Date: 20140803
  Receipt Date: 20140822
  Transmission Date: 20150326
  Serious: Yes (Hospitalization)
  Sender: FDA-Public Use
  Company Number: US-BRISTOL-MYERS SQUIBB COMPANY-21230784

PATIENT
  Age: 63 Year
  Sex: Male
  Weight: 96.3 kg

DRUGS (16)
  1. LEVOTHYROXINE SODIUM. [Concomitant]
     Active Substance: LEVOTHYROXINE SODIUM
  2. AMBIEN [Concomitant]
     Active Substance: ZOLPIDEM TARTRATE
  3. PLACEBO [Suspect]
     Active Substance: UNSPECIFIED INGREDIENT
     Indication: METASTATIC MALIGNANT MELANOMA
     Route: 042
     Dates: start: 20131114, end: 20140329
  4. IBUPROFEN. [Concomitant]
     Active Substance: IBUPROFEN
  5. HYDROCORTISONE. [Concomitant]
     Active Substance: HYDROCORTISONE
  6. IPILIMUMAB [Suspect]
     Active Substance: IPILIMUMAB
     Indication: METASTATIC MALIGNANT MELANOMA
     Route: 042
     Dates: start: 20131114, end: 20140128
  7. PREDNISONE. [Concomitant]
     Active Substance: PREDNISONE
  8. TRAVATAN [Concomitant]
     Active Substance: TRAVOPROST
  9. ATIVAN [Concomitant]
     Active Substance: LORAZEPAM
  10. POTASSIUM CHLORIDE. [Concomitant]
     Active Substance: POTASSIUM CHLORIDE
  11. BLINDED: NIVOLUMAB [Suspect]
     Active Substance: NIVOLUMAB
     Indication: METASTATIC MALIGNANT MELANOMA
     Route: 042
     Dates: start: 20131114, end: 20140329
  12. MULTIVITAMIN [Concomitant]
     Active Substance: VITAMINS
  13. FLONASE [Concomitant]
     Active Substance: FLUTICASONE PROPIONATE
  14. SIMVASTATIN. [Concomitant]
     Active Substance: SIMVASTATIN
  15. FISH OIL [Concomitant]
     Active Substance: FISH OIL
  16. HYDROCHLOROTHIAZIDE. [Concomitant]
     Active Substance: HYDROCHLOROTHIAZIDE

REACTIONS (1)
  - Pneumonitis [Recovered/Resolved]

NARRATIVE: CASE EVENT DATE: 20140401
